FAERS Safety Report 17386443 (Version 1)
Quarter: 2020Q1

REPORT INFORMATION
  Report Type: Spontaneous
  Country: JP (occurrence: JP)
  Receive Date: 20200206
  Receipt Date: 20200206
  Transmission Date: 20200409
  Serious: Yes (Hospitalization)
  Sender: FDA-Public Use
  Company Number: JP-PFIZER INC-2020046454

PATIENT

DRUGS (1)
  1. CARDENALIN [Suspect]
     Active Substance: DOXAZOSIN MESYLATE
     Dosage: UNK
     Route: 048

REACTIONS (2)
  - Subdural haemorrhage [Unknown]
  - Vein disorder [Unknown]
